FAERS Safety Report 9986645 (Version 1)
Quarter: 2014Q1

REPORT INFORMATION
  Report Type: Spontaneous
  Country: US (occurrence: US)
  Receive Date: 20140307
  Receipt Date: 20140307
  Transmission Date: 20141002
  Serious: No
  Sender: FDA-Public Use
  Company Number: US-B.I. PHARMACEUTICALS,INC./RIDGEFIELD-2014-BI-08291BP

PATIENT
  Age: 61 Year
  Sex: Female
  Weight: 90.91 kg

DRUGS (3)
  1. MELOXICAM [Suspect]
     Indication: NEUROMA
     Dosage: 15 MG
     Route: 048
  2. ASPIRIN [Concomitant]
     Dosage: 81 MG
     Route: 065
  3. CVS MULTIVITAMIN [Concomitant]
     Route: 065

REACTIONS (1)
  - Drug ineffective [Unknown]
